FAERS Safety Report 6442049-3 (Version None)
Quarter: 2009Q4

REPORT INFORMATION
  Report Type: 
  Country: None (occurrence: None)
  Receive Date: 20091112
  Receipt Date: 20091102
  Transmission Date: 20100525
  Serious: Yes (Other)
  Sender: FDA-Public Use
  Company Number: ADR47002009

PATIENT
  Age: 70 Year
  Sex: Male

DRUGS (5)
  1. SIMVASTATIN [Suspect]
     Indication: PROPHYLAXIS
     Dosage: 120MG ORAL
     Route: 048
     Dates: start: 20061221, end: 20070401
  2. AMLODIPINE [Concomitant]
  3. ATENOLOL [Concomitant]
  4. ATORVASTATIN [Concomitant]
  5. PERINDOPRIL [Concomitant]

REACTIONS (5)
  - CHEST PAIN [None]
  - HYPERHIDROSIS [None]
  - MALAISE [None]
  - MUSCULAR WEAKNESS [None]
  - NAUSEA [None]
